FAERS Safety Report 25285963 (Version 1)
Quarter: 2025Q2

REPORT INFORMATION
  Report Type: Spontaneous
  Country: JP (occurrence: JP)
  Receive Date: 20250509
  Receipt Date: 20250509
  Transmission Date: 20250717
  Serious: Yes (Other)
  Sender: GLAXOSMITHKLINE
  Company Number: JP-GSKJP-JP2025JPN053561AA

PATIENT

DRUGS (1)
  1. BENLYSTA [Suspect]
     Active Substance: BELIMUMAB
     Indication: Systemic lupus erythematosus

REACTIONS (14)
  - Antiphospholipid syndrome [Unknown]
  - Sjogren^s syndrome [Unknown]
  - Lupus nephritis [Unknown]
  - Autoimmune disorder [Unknown]
  - Hyperthyroidism [Unknown]
  - Hypothyroidism [Unknown]
  - Nausea [Recovered/Resolved]
  - Coronavirus infection [Unknown]
  - Hyperthermia [Unknown]
  - Cough [Unknown]
  - Collagen disorder [Unknown]
  - Photosensitivity reaction [Unknown]
  - Panic disorder [Unknown]
  - Radioisotope therapy [Unknown]

NARRATIVE: CASE EVENT DATE: 20250301
